FAERS Safety Report 9275796 (Version 1)
Quarter: 2013Q2

REPORT INFORMATION
  Report Type: Spontaneous
  Country: DE (occurrence: None)
  Receive Date: 20130430
  Receipt Date: 20130430
  Transmission Date: 20140414
  Serious: Yes (Hospitalization, Other)
  Sender: FDA-Public Use
  Company Number: GER/GER/13/0029057

PATIENT
  Age: 71 Year
  Sex: Female

DRUGS (5)
  1. SERTRALINE (SERTRALINE) (SERTRALINE) [Suspect]
     Indication: PRODUCT USED FOR UNKNOWN INDICATION
  2. MIRTAZAPINE (MIRTAZAPINE) [Suspect]
     Indication: PRODUCT USED FOR UNKNOWN INDICATION
     Route: 048
     Dates: start: 20120824, end: 20120828
  3. LORAZEPAM (LORAZEPAM) [Concomitant]
  4. RAMIPRIL (RAMIPRIL) [Concomitant]
  5. HYDROCHLOROTHIAZIDE (HYDROCHLOROTHIAZIDE) [Concomitant]

REACTIONS (3)
  - Dermatitis allergic [None]
  - Rash [None]
  - Suicide attempt [None]
